FAERS Safety Report 14700009 (Version 1)
Quarter: 2018Q1

REPORT INFORMATION
  Report Type: Report from Study
  Country: FR (occurrence: FR)
  Receive Date: 20180330
  Receipt Date: 20180330
  Transmission Date: 20180509
  Serious: Yes (Hospitalization)
  Sender: FDA-Public Use
  Company Number: FR-PFIZER INC-2018127775

PATIENT
  Age: 64 Year
  Sex: Female
  Weight: 45 kg

DRUGS (20)
  1. SODIUM CHLORIDE. [Concomitant]
     Active Substance: SODIUM CHLORIDE
     Indication: DYSPNOEA
     Dosage: 30 ML (10 ML,3 IN 1 D)
     Route: 055
     Dates: start: 20171207, end: 201801
  2. SOLU-MEDROL [Concomitant]
     Active Substance: METHYLPREDNISOLONE SODIUM SUCCINATE
     Indication: DYSPNOEA
     Dosage: 60 MG (60 MG,1 IN 1 D)
     Route: 042
     Dates: start: 20171215, end: 20171219
  3. PREDNISOLONE. [Concomitant]
     Active Substance: PREDNISOLONE
     Indication: DYSPNOEA
     Dosage: 40 MG (40 MG,1 IN 1 D)
     Route: 042
     Dates: start: 20171219, end: 20171221
  4. ATROVENT [Concomitant]
     Active Substance: IPRATROPIUM BROMIDE
     Indication: DYSPNOEA
     Dosage: 1 MG (0.5 MG,2 IN 1 D)
     Route: 055
     Dates: start: 201706, end: 20171204
  5. OXALIPLATIN. [Suspect]
     Active Substance: OXALIPLATIN
     Dosage: 133 MG, CYCLIC (ONCE EVERY TWO WEEKS)
     Route: 042
     Dates: start: 20180126
  6. PREDNISOLONE. [Concomitant]
     Active Substance: PREDNISOLONE
     Dosage: 10 MG (10 MG,1 IN 1 D)
     Route: 048
     Dates: start: 20180111, end: 201801
  7. OXALIPLATIN. [Suspect]
     Active Substance: OXALIPLATIN
     Dosage: 131 MG, CYCLIC (ONCE EVERY TWO WEEKS)
     Route: 042
     Dates: end: 20171219
  8. BRICANYL [Concomitant]
     Active Substance: TERBUTALINE SULFATE
     Indication: EMPHYSEMA
     Dosage: 15 MG (5 MG,1 IN 8 HR)
     Route: 055
     Dates: start: 20171205, end: 20171206
  9. AUGMENTIN [Concomitant]
     Active Substance: AMOXICILLIN\CLAVULANATE POTASSIUM
     Indication: DYSPNOEA
     Dosage: 1G/125MG (3 SACHET,1 IN 1 D)
     Route: 048
     Dates: start: 20171219, end: 20171220
  10. ATROVENT [Concomitant]
     Active Substance: IPRATROPIUM BROMIDE
     Dosage: 1.5 MG (0.5 MG,3 IN 1 D)
     Route: 055
     Dates: start: 20171211, end: 201801
  11. PREDNISOLONE. [Concomitant]
     Active Substance: PREDNISOLONE
     Indication: DYSPNOEA
     Dosage: 20 MG (20 MG,1 IN 1 D)
     Route: 048
     Dates: start: 20171221, end: 20180111
  12. BRICANYL [Concomitant]
     Active Substance: TERBUTALINE SULFATE
     Dosage: 15 MG (5 MG,3 IN 1 D)
     Route: 055
     Dates: start: 20171211, end: 201801
  13. OXALIPLATIN. [Suspect]
     Active Substance: OXALIPLATIN
     Indication: ADENOCARCINOMA GASTRIC
     Dosage: 131 MG, CYCLIC (ONCE EVERY TWO WEEKS)
     Route: 042
     Dates: start: 20171006
  14. ATROVENT [Concomitant]
     Active Substance: IPRATROPIUM BROMIDE
     Indication: EMPHYSEMA
     Dosage: 1.5 MG (0.5 MG,1 IN 8 HR)
     Route: 055
     Dates: start: 20171205, end: 20171206
  15. OXYGEN. [Concomitant]
     Active Substance: OXYGEN
     Indication: DYSPNOEA
     Dosage: 6 LIT,PER MINUTE
     Route: 055
     Dates: start: 20171205, end: 201712
  16. LEUCOVORIN /00566701/ [Concomitant]
     Active Substance: LEUCOVORIN
     Indication: ADENOCARCINOMA GASTRIC
     Dosage: UNK
     Route: 042
  17. FLUOROURACIL. [Suspect]
     Active Substance: FLUOROURACIL
     Indication: ADENOCARCINOMA GASTRIC
     Dosage: 286 MG (4004 MG,CONTINOUS INFUSION OVER 24H ON DAY 1)
     Route: 042
     Dates: start: 20171006, end: 20171219
  18. FLUOROURACIL. [Suspect]
     Active Substance: FLUOROURACIL
     Dosage: 291.5714 MG (4082 MG,CONTINOUS INFUSION OVER 24H ON DAY 1)
     Route: 042
     Dates: start: 20180126
  19. AUGMENTIN [Concomitant]
     Active Substance: AMOXICILLIN\CLAVULANATE POTASSIUM
     Indication: DYSPNOEA
     Dosage: 1 FLACON, 1G/200MG (3 IN 1 D)
     Route: 042
     Dates: start: 20171211, end: 20171219
  20. BRICANYL [Concomitant]
     Active Substance: TERBUTALINE SULFATE
     Indication: DYSPNOEA
     Dosage: 10 MG (5 MG,2 IN 1 D)
     Route: 055
     Dates: start: 201706, end: 20171204

REACTIONS (1)
  - Lung disorder [Recovered/Resolved]

NARRATIVE: CASE EVENT DATE: 20180304
